FAERS Safety Report 13010551 (Version 1)
Quarter: 2016Q4

REPORT INFORMATION
  Report Type: Spontaneous
  Country: US (occurrence: US)
  Receive Date: 20161208
  Receipt Date: 20161208
  Transmission Date: 20170207
  Serious: Yes (Other)
  Sender: FDA-Public Use
  Company Number: US-BRISTOL-MYERS SQUIBB COMPANY-BMS-2016-102018

PATIENT
  Age: 84 Year
  Sex: Male
  Weight: 58.96 kg

DRUGS (1)
  1. OPDIVO [Suspect]
     Active Substance: NIVOLUMAB
     Indication: HEPATIC CANCER
     Dosage: FOUR
     Route: 042

REACTIONS (7)
  - Joint swelling [Unknown]
  - Fatigue [Unknown]
  - Nasopharyngitis [Unknown]
  - Ageusia [Unknown]
  - Malaise [Unknown]
  - Drug ineffective [Unknown]
  - Product use issue [Unknown]
